FAERS Safety Report 5471615-7 (Version None)
Quarter: 2007Q3

REPORT INFORMATION
  Report Type: 
  Country: None (occurrence: None)
  Receive Date: 20070928
  Receipt Date: 20070207
  Transmission Date: 20080115
  Serious: No
  Sender: FDA-Public Use
  Company Number: US-BRISTOL-MYERS SQUIBB COMPANY-13672290

PATIENT
  Age: 52 Year
  Sex: Female
  Weight: 85 kg

DRUGS (4)
  1. DEFINITY [Suspect]
     Indication: CARDIAC PHARMACOLOGIC STRESS TEST
  2. PREDNISONE [Concomitant]
  3. ZESTORETIC [Concomitant]
  4. PLAQUENIL [Concomitant]

REACTIONS (1)
  - ABDOMINAL PAIN LOWER [None]
